FAERS Safety Report 4642187-1 (Version None)
Quarter: 2005Q2

REPORT INFORMATION
  Report Type: 
  Country: None (occurrence: None)
  Receive Date: 20050421
  Receipt Date: 20050421
  Transmission Date: 20051028
  Serious: Yes (Other)
  Sender: FDA-Public Use
  Company Number: None

PATIENT
  Sex: Female
  Weight: 66.6788 kg

DRUGS (1)
  1. WELLBUTRIN SR [Suspect]

REACTIONS (4)
  - ABNORMAL DREAMS [None]
  - MORBID THOUGHTS [None]
  - NIGHTMARE [None]
  - PHARMACEUTICAL PRODUCT COMPLAINT [None]
